FAERS Safety Report 5188233-0 (Version None)
Quarter: 2006Q4

REPORT INFORMATION
  Report Type: 
  Country: None (occurrence: None)
  Receive Date: 20061221
  Receipt Date: 20040203
  Transmission Date: 20070319
  Serious: Yes (Death, Hospitalization)
  Sender: FDA-Public Use
  Company Number: US-GLAXOSMITHKLINE-A0496711A

PATIENT
  Age: 12 Year
  Sex: Female

DRUGS (2)
  1. PAXIL [Suspect]
     Indication: EMOTIONAL DISTRESS
     Route: 048
     Dates: start: 19991102
  2. ZOLOFT [Suspect]
     Indication: EMOTIONAL DISTRESS
     Route: 065

REACTIONS (6)
  - AGITATION [None]
  - AKATHISIA [None]
  - COMPLETED SUICIDE [None]
  - HALLUCINATION [None]
  - MALAISE [None]
  - SUICIDAL IDEATION [None]
